FAERS Safety Report 5611921-6 (Version None)
Quarter: 2008Q1

REPORT INFORMATION
  Report Type: 
  Country: None (occurrence: None)
  Receive Date: 20080131
  Receipt Date: 20080131
  Transmission Date: 20080703
  Serious: Yes (Death, Hospitalization)
  Sender: FDA-Public Use
  Company Number: None

PATIENT
  Sex: Female
  Weight: 32.8 kg

DRUGS (6)
  1. CYTARABINE [Suspect]
     Dosage: 70 MG
  2. DAUNORUBICIN HCL [Suspect]
     Dosage: 116 MG
  3. METHOTREXATE [Suspect]
     Dosage: 15 MG
  4. PEG-L- ASPARAGINASE (K-H) [Suspect]
     Dosage: 2925 IU
  5. PREDNISONE TAB [Suspect]
     Dosage: 700 MG
  6. VINCRISTINE SULFATE [Suspect]
     Dosage: 5.4 MG

REACTIONS (4)
  - BRONCHOPULMONARY ASPERGILLOSIS [None]
  - CEREBRAL FUNGAL INFECTION [None]
  - KIDNEY INFECTION [None]
  - SYSTEMIC CANDIDA [None]
